FAERS Safety Report 19513264 (Version 1)
Quarter: 2021Q3

REPORT INFORMATION
  Report Type: Spontaneous
  Country: CN (occurrence: CN)
  Receive Date: 20210709
  Receipt Date: 20210709
  Transmission Date: 20211014
  Serious: Yes (Other)
  Sender: FDA-Public Use
  Company Number: CN-ASTRAZENECA-2021A601713

PATIENT
  Age: 22411 Day
  Sex: Male
  Weight: 45 kg

DRUGS (4)
  1. GLYCYRRHIZIC ACID DIAMINE [Concomitant]
     Indication: LIVER DISORDER
     Route: 048
  2. GLUTATHIONE [Concomitant]
     Active Substance: GLUTATHIONE
     Indication: LIVER DISORDER
     Route: 065
  3. TAGRISSO [Suspect]
     Active Substance: OSIMERTINIB
     Indication: DRUG THERAPY
     Route: 048
     Dates: start: 20210501, end: 20210504
  4. LILLY [Concomitant]
     Indication: DRUG THERAPY
     Route: 065
     Dates: start: 20210501, end: 20210501

REACTIONS (1)
  - Drug-induced liver injury [Recovering/Resolving]

NARRATIVE: CASE EVENT DATE: 20210504
